FAERS Safety Report 6812764-8 (Version None)
Quarter: 2010Q3

REPORT INFORMATION
  Report Type: 
  Country: None (occurrence: None)
  Receive Date: 20100701
  Receipt Date: 20100628
  Transmission Date: 20110219
  Serious: Yes (Death)
  Sender: FDA-Public Use
  Company Number: A0867964A

PATIENT
  Sex: Male

DRUGS (2)
  1. ZOFRAN [Suspect]
     Indication: PRODUCT USED FOR UNKNOWN INDICATION
     Dosage: 8MG UNKNOWN
     Route: 065
     Dates: start: 20080922
  2. UNKNOWN [Concomitant]

REACTIONS (1)
  - DEATH [None]
